FAERS Safety Report 25744212 (Version 1)
Quarter: 2025Q3

REPORT INFORMATION
  Report Type: Spontaneous
  Country: JP (occurrence: JP)
  Receive Date: 20250901
  Receipt Date: 20250901
  Transmission Date: 20251021
  Serious: Yes (Other)
  Sender: ABBVIE
  Company Number: JP-ABBVIE-6438775

PATIENT
  Age: 83 Year
  Sex: Male

DRUGS (2)
  1. LUMIGAN [Suspect]
     Active Substance: BIMATOPROST
     Indication: Glaucoma
     Route: 047
  2. ASPIRIN [Concomitant]
     Active Substance: ASPIRIN
     Indication: Glaucoma
     Route: 048

REACTIONS (1)
  - Eyelid ptosis [Unknown]
